FAERS Safety Report 6702672-5 (Version None)
Quarter: 2010Q2

REPORT INFORMATION
  Report Type: 
  Country: None (occurrence: None)
  Receive Date: 20100429
  Receipt Date: 20100420
  Transmission Date: 20101027
  Serious: Yes (Death, Life-Threatening)
  Sender: FDA-Public Use
  Company Number: FR-KINGPHARMUSA00001-K201000055

PATIENT
  Age: 61 Year
  Sex: Male

DRUGS (25)
  1. ALTACE [Suspect]
     Dosage: 2.5 MG, QD
     Route: 048
     Dates: start: 20091021, end: 20091024
  2. AGOPTON [Suspect]
     Dosage: 15 MG, QD
     Route: 048
     Dates: start: 20091020, end: 20091028
  3. ARIXTRA [Suspect]
     Dosage: 2.5 MG, QD
     Route: 058
     Dates: start: 20091020, end: 20091028
  4. ACETYLSALICYLIC ACID [Suspect]
     Dosage: 100 MG, QD
     Route: 048
     Dates: start: 20091020, end: 20091028
  5. FINLEPSIN [Suspect]
     Dosage: 200 MG, TID
     Route: 048
     Dates: start: 20091020, end: 20091028
  6. SIMVASTATIN [Suspect]
     Dosage: 20 MG, QD
     Route: 048
     Dates: start: 20091025, end: 20091027
  7. METOPROLOL SUCCINATE [Suspect]
     Dosage: UNK
     Route: 048
     Dates: start: 20091020, end: 20091024
  8. LORAZEPAM [Suspect]
     Dosage: 1 MG, QID
     Route: 048
     Dates: start: 20091020, end: 20091026
  9. LORAZEPAM [Suspect]
     Dosage: 1 MG, BID
     Route: 048
     Dates: start: 20091027, end: 20091027
  10. ZOPICLON [Suspect]
     Dosage: 7.5 MG, QD
     Route: 048
     Dates: start: 20091020, end: 20091026
  11. EUNERPAN [Suspect]
     Dosage: 25 MG, QD
     Dates: start: 20091020, end: 20091027
  12. CLONIDINE HYDROCHLORIDE [Suspect]
     Dosage: 0.075 MG, BID
     Route: 048
     Dates: start: 20091020, end: 20091024
  13. TORASEMIDE [Suspect]
     Dosage: 10 MG, TID
     Route: 048
     Dates: start: 20091020, end: 20091020
  14. TORASEMIDE [Suspect]
     Dosage: 10 MG, BID
     Route: 048
     Dates: start: 20091021, end: 20091022
  15. TORASEMIDE [Suspect]
     Dosage: 10 MG, QD
     Route: 048
     Dates: start: 20091023, end: 20091026
  16. TORASEMIDE [Suspect]
     Dosage: 10 MG, TID
     Route: 048
     Dates: start: 20091027, end: 20091027
  17. ARTERENOL [Suspect]
     Dosage: UNK, ONCE
     Dates: start: 20091025, end: 20091025
  18. ARTERENOL [Suspect]
     Dosage: UNK, ONCE
     Dates: start: 20091028, end: 20091028
  19. FLUNITRAZEPAM [Suspect]
     Dosage: 1 DF, QD
     Route: 048
     Dates: start: 20091027, end: 20091028
  20. FUROSEMIDE [Suspect]
     Dosage: 20 MG, TID
     Route: 042
     Dates: start: 20091028, end: 20091028
  21. ZIENAM [Suspect]
     Dosage: 1 G, TID
     Dates: start: 20091028, end: 20091028
  22. SULBACTAM [Suspect]
     Dosage: 1 G, TID
     Route: 042
     Dates: start: 20091025, end: 20091027
  23. BERLINSULIN H [Concomitant]
     Dosage: UNK
     Dates: start: 20091020, end: 20091028
  24. ACETYLCYSTEINE [Concomitant]
     Dosage: UNK
     Dates: start: 20091020, end: 20091028
  25. KALINOR-BRAUSETABLETTEN [Concomitant]
     Dosage: UNK
     Dates: start: 20091021, end: 20091027

REACTIONS (5)
  - CARDIOVASCULAR INSUFFICIENCY [None]
  - RENAL FAILURE ACUTE [None]
  - RHABDOMYOLYSIS [None]
  - SEPTIC SHOCK [None]
  - URINE COLOUR ABNORMAL [None]
